FAERS Safety Report 10732279 (Version 1)
Quarter: 2015Q1

REPORT INFORMATION
  Report Type: Spontaneous
  Country: IT (occurrence: IT)
  Receive Date: 20150123
  Receipt Date: 20150123
  Transmission Date: 20150721
  Serious: Yes (Other)
  Sender: FDA-Public Use
  Company Number: IT-TEVA-535147ISR

PATIENT
  Age: 71 Year
  Sex: Male
  Weight: 82 kg

DRUGS (4)
  1. ALIMTA [Suspect]
     Active Substance: PEMETREXED DISODIUM
     Route: 042
     Dates: start: 20141216, end: 20150108
  2. ALIMTA [Suspect]
     Active Substance: PEMETREXED DISODIUM
     Indication: LUNG ADENOCARCINOMA STAGE IV
     Route: 042
     Dates: start: 20141006
  3. CARBOPLATINO TEVA - TEVA PHARMA B.V. [Suspect]
     Active Substance: CARBOPLATIN
     Indication: LUNG ADENOCARCINOMA STAGE IV
     Route: 042
     Dates: start: 20141006
  4. CARBOPLATINO TEVA - TEVA PHARMA B.V. [Suspect]
     Active Substance: CARBOPLATIN
     Route: 042
     Dates: start: 20141216, end: 20150108

REACTIONS (4)
  - Anaemia [Recovering/Resolving]
  - Leukopenia [Recovering/Resolving]
  - Thrombocytopenia [Recovering/Resolving]
  - Bone marrow toxicity [Recovering/Resolving]

NARRATIVE: CASE EVENT DATE: 20141204
